FAERS Safety Report 21286706 (Version 1)
Quarter: 2022Q3

REPORT INFORMATION
  Report Type: Spontaneous
  Country: US (occurrence: None)
  Receive Date: 20220902
  Receipt Date: 20220902
  Transmission Date: 20221026
  Serious: No
  Sender: FDA-Public Use
  Company Number: None

PATIENT

DRUGS (1)
  1. CARBAMIDE PEROXIDE [Suspect]
     Active Substance: CARBAMIDE PEROXIDE

REACTIONS (3)
  - Product label confusion [None]
  - Circumstance or information capable of leading to medication error [None]
  - Product use complaint [None]
